FAERS Safety Report 10273318 (Version 1)
Quarter: 2014Q1

REPORT INFORMATION
  Report Type: Spontaneous
  Country: US (occurrence: None)
  Receive Date: 20140306
  Receipt Date: 20140306
  Transmission Date: 20141002
  Serious: Yes (Hospitalization)
  Sender: FDA-Public Use
  Company Number: 163-21880-13013669

PATIENT
  Age: 73 Year
  Sex: Male
  Weight: 67.6 kg

DRUGS (10)
  1. REVLIMID [Suspect]
     Indication: PLASMA CELL MYELOMA
     Route: 048
     Dates: start: 20111207
  2. DEXAMETHASONE (DEXAMETHASONE) (UNKNOWN) [Suspect]
     Indication: PLASMA CELL MYELOMA
     Route: 048
     Dates: start: 20111207
  3. B 12 [Concomitant]
  4. OSCAL (CALCIUM CARBONATE) (UNKNOWN) [Concomitant]
  5. PEPCID (FAMOTIDINE) (UNKNOWN) [Concomitant]
  6. BABY ASPIRIN (ACETYLSALICYLIC ACID) (UNKNOWN) [Concomitant]
  7. ZOMETA (ZOLEDRONIC ACID) (UNKNOWN) [Concomitant]
  8. PERIDEX (CHLORHEXIDINE GLUCONATE) (UNKNOWN) [Concomitant]
  9. TUMS (CALCIUM CARBONATE) (UNKNOWN) [Concomitant]
  10. FERROUS SULFATE (FERROUS SULFATE) (UNKNOWN) [Concomitant]

REACTIONS (1)
  - Pneumonia [None]
